FAERS Safety Report 15925285 (Version 1)
Quarter: 2019Q1

REPORT INFORMATION
  Report Type: Spontaneous
  Country: US (occurrence: US)
  Receive Date: 20190206
  Receipt Date: 20190206
  Transmission Date: 20190417
  Serious: No
  Sender: FDA-Public Use
  Company Number: US-PFIZER INC-2019051797

PATIENT
  Age: 9 Year
  Sex: Male

DRUGS (1)
  1. GENOTROPIN MQ [Suspect]
     Active Substance: SOMATROPIN
     Dosage: 0.8 MG, DAILY
     Dates: start: 20091212

REACTIONS (9)
  - Blood glucose increased [Unknown]
  - Blood sodium decreased [Unknown]
  - Anion gap increased [Unknown]
  - Neutrophil count increased [Unknown]
  - Basophil count increased [Unknown]
  - Platelet count increased [Unknown]
  - Blood potassium increased [Unknown]
  - Immature granulocyte count increased [Unknown]
  - Eosinophil count increased [Unknown]

NARRATIVE: CASE EVENT DATE: 20190103
